FAERS Safety Report 9877292 (Version 2)
Quarter: 2014Q2

REPORT INFORMATION
  Report Type: Spontaneous
  Country: FR (occurrence: FR)
  Receive Date: 20140206
  Receipt Date: 20140508
  Transmission Date: 20141212
  Serious: Yes (Hospitalization)
  Sender: FDA-Public Use
  Company Number: PHHY2014FR012826

PATIENT
  Age: 38 Year
  Sex: Female

DRUGS (7)
  1. SIGNIFOR [Suspect]
     Indication: CUSHING^S SYNDROME
     Dosage: 600 UG, BID
     Route: 058
     Dates: start: 20140107, end: 20140113
  2. SIGNIFOR [Suspect]
     Indication: OFF LABEL USE
  3. METOPIRONE [Concomitant]
     Indication: CUSHING^S SYNDROME
     Dosage: 3750 MG, DAILY
  4. HYDROCORTISONE [Concomitant]
     Dosage: 15 MG, UNK
     Route: 048
  5. LEVOTHYROXINE [Concomitant]
     Dosage: 125 UG, UNK
     Route: 048
  6. DOSTINEX [Concomitant]
     Dosage: 0.25 MG FROM MONDAY TO FRIDAY AND 0.5MG FROM SATURDAY TO SUNDAY
  7. DIFFU-K [Concomitant]
     Dosage: 1 DF, TID

REACTIONS (2)
  - Hepatic enzyme increased [Recovered/Resolved]
  - Vomiting [Recovered/Resolved]
